FAERS Safety Report 7752633-2 (Version None)
Quarter: 2011Q3

REPORT INFORMATION
  Report Type: 
  Country: None (occurrence: None)
  Receive Date: 20110915
  Receipt Date: 20110908
  Transmission Date: 20111222
  Serious: Yes (Hospitalization)
  Sender: FDA-Public Use
  Company Number: DE-ROCHE-690249

PATIENT
  Sex: Female
  Weight: 77 kg

DRUGS (2)
  1. DOCETAXEL [Suspect]
     Dosage: DOSE AS REPORTED: 139, 25 MG
     Route: 065
  2. RHUPH20/TRASTUZUMAB [Suspect]
     Dosage: LAST DOSE PRIOR TO SAE: 16 APRIL 2010
     Route: 058
     Dates: start: 20100305

REACTIONS (4)
  - GENERAL PHYSICAL HEALTH DETERIORATION [None]
  - NAUSEA [None]
  - PYREXIA [None]
  - LEUKOPENIA [None]
